FAERS Safety Report 5086606-8 (Version None)
Quarter: 2006Q3

REPORT INFORMATION
  Report Type: 
  Country: None (occurrence: None)
  Receive Date: 20060703
  Receipt Date: 20050916
  Transmission Date: 20061208
  Serious: No
  Sender: FDA-Public Use
  Company Number: 2005S1009157

PATIENT
  Age: 41 Year
  Sex: Female

DRUGS (11)
  1. CLOZAPINE [Suspect]
     Indication: PSYCHOTIC DISORDER
     Dosage: 600 MG;HS;PO
     Route: 048
     Dates: start: 20010501, end: 20050831
  2. CLOZAPINE [Suspect]
     Indication: SCHIZOAFFECTIVE DISORDER
     Dosage: 600 MG;HS;PO
     Route: 048
     Dates: start: 20010501, end: 20050831
  3. ZYPREXA [Suspect]
     Indication: PSYCHOTIC DISORDER
  4. ESOMEPRAZOLE MAGNESIUM [Concomitant]
  5. LOVASTATIN [Concomitant]
  6. ZOLPIDEM TARTRATE [Concomitant]
  7. PAROXETINE HYDROCHLORIDE [Concomitant]
  8. CLONAZEPAM [Concomitant]
  9. CLOMIPRAMINE HCL [Concomitant]
  10. ESCITALOPRAM OXALATE [Concomitant]
  11. QUETIAPINE FUMARATE [Concomitant]

REACTIONS (2)
  - GRANULOCYTOPENIA [None]
  - WEIGHT INCREASED [None]
